FAERS Safety Report 19729163 (Version 1)
Quarter: 2021Q3

REPORT INFORMATION
  Report Type: Report from Study
  Country: None (occurrence: US)
  Receive Date: 20210821
  Receipt Date: 20210821
  Transmission Date: 20211014
  Serious: Yes (Other)
  Sender: FDA-Public Use
  Company Number: US-ABBVIE-21K-163-4045944-00

PATIENT
  Sex: Female

DRUGS (1)
  1. HUMIRA [Suspect]
     Active Substance: ADALIMUMAB
     Indication: RHEUMATOID ARTHRITIS
     Dosage: CITRATE FREE
     Route: 058

REACTIONS (7)
  - Pain [Recovering/Resolving]
  - Feeling abnormal [Recovering/Resolving]
  - Heart rate increased [Recovered/Resolved]
  - Urticaria [Recovered/Resolved]
  - Contusion [Recovering/Resolving]
  - Cardiac disorder [Recovering/Resolving]
  - Nausea [Recovered/Resolved]
